FAERS Safety Report 7455177-0 (Version None)
Quarter: 2011Q2

REPORT INFORMATION
  Report Type: 
  Country: None (occurrence: None)
  Receive Date: 20110503
  Receipt Date: 20110420
  Transmission Date: 20111010
  Serious: Yes (Hospitalization, Other)
  Sender: FDA-Public Use
  Company Number: PHFR2011GB01533

PATIENT
  Sex: Male
  Weight: 114 kg

DRUGS (9)
  1. AMPHETAMINE [Suspect]
     Dosage: UNK DF, UNK
     Dates: start: 20110220
  2. CLOZARIL [Suspect]
     Dosage: 100 MG, QD
     Route: 048
     Dates: start: 20110415
  3. CLOZARIL [Suspect]
     Dosage: 150 MG, QD
     Route: 048
     Dates: start: 20110416
  4. CLOZARIL [Suspect]
     Dosage: 300 MG, QD
     Route: 048
     Dates: start: 20110417
  5. CLOZARIL [Suspect]
     Indication: SCHIZOPHRENIA
     Dosage: 300 MG, QD
     Route: 048
     Dates: start: 20061103
  6. LYMECYCLINE [Concomitant]
     Indication: ACNE
     Dosage: 480 MG, QD
     Route: 048
  7. CLONAZEPAM [Concomitant]
     Indication: SCHIZOPHRENIA
     Dosage: 1 MG, QD
     Route: 048
  8. LANSOPRAZOLE [Concomitant]
     Indication: DYSPEPSIA
     Dosage: 30 MG, QD
     Route: 048
  9. CLOZARIL [Suspect]
     Dosage: 300 MG, QD
     Route: 048
     Dates: start: 20110225

REACTIONS (6)
  - CHOREOATHETOSIS [None]
  - DYSTONIA [None]
  - INCORRECT DOSE ADMINISTERED [None]
  - OVERDOSE [None]
  - IDIOSYNCRATIC DRUG REACTION [None]
  - CONFUSIONAL STATE [None]
